FAERS Safety Report 4509568-8 (Version None)
Quarter: 2004Q4

REPORT INFORMATION
  Report Type: 
  Country: None (occurrence: None)
  Receive Date: 20041119
  Receipt Date: 20041108
  Transmission Date: 20050328
  Serious: Yes (Other)
  Sender: FDA-Public Use
  Company Number: US-2004-031402

PATIENT
  Age: 39 Year
  Sex: Female

DRUGS (1)
  1. BETASERON [Suspect]
     Indication: MULTIPLE SCLEROSIS
     Dosage: 8 MIU, EVERY 2D, SUBCUTANEOUS
     Route: 058
     Dates: start: 20030206, end: 20041101

REACTIONS (11)
  - BLOOD ELECTROLYTES ABNORMAL [None]
  - DRY SKIN [None]
  - HEADACHE [None]
  - HEPATIC ENZYME INCREASED [None]
  - INJECTION SITE ERYTHEMA [None]
  - INJECTION SITE INFECTION [None]
  - MIXED CONNECTIVE TISSUE DISEASE [None]
  - RENAL FAILURE [None]
  - SKIN ULCER [None]
  - SYSTEMIC LUPUS ERYTHEMATOSUS [None]
  - VASCULITIS [None]
